FAERS Safety Report 22007337 (Version 1)
Quarter: 2023Q1

REPORT INFORMATION
  Report Type: Spontaneous
  Country: NL (occurrence: NL)
  Receive Date: 20230218
  Receipt Date: 20230218
  Transmission Date: 20230418
  Serious: Yes (Other)
  Sender: FDA-Public Use
  Company Number: NL-AMGEN-NLDSP2023025422

PATIENT
  Sex: Male

DRUGS (3)
  1. LUMAKRAS [Suspect]
     Active Substance: SOTORASIB
     Indication: Product used for unknown indication
     Dosage: UNK
     Route: 065
     Dates: start: 202212
  2. LUMAKRAS [Suspect]
     Active Substance: SOTORASIB
     Dosage: REDUCED DOSE TO 50 PERCENT
     Route: 065
  3. LUMAKRAS [Suspect]
     Active Substance: SOTORASIB
     Dosage: INCREASING HIS DOSE AGAIN TAKING 2 TABLETS
     Route: 065
     Dates: start: 2023

REACTIONS (3)
  - Hepatitis [Recovered/Resolved]
  - Epilepsy [Unknown]
  - Diarrhoea [Unknown]

NARRATIVE: CASE EVENT DATE: 20221218
